FAERS Safety Report 10600860 (Version 1)
Quarter: 2014Q4

REPORT INFORMATION
  Report Type: Spontaneous
  Country: US (occurrence: None)
  Receive Date: 20141121
  Receipt Date: 20141121
  Transmission Date: 20150529
  Serious: Yes (Other)
  Sender: FDA-Public Use
  Company Number: None

PATIENT
  Age: 31 Year
  Sex: Female
  Weight: 80.29 kg

DRUGS (12)
  1. IBU [Concomitant]
     Active Substance: IBUPROFEN
  2. PENVK [Concomitant]
  3. EXJADE [Suspect]
     Active Substance: DEFERASIROX
     Indication: WEIGHT DECREASED
     Route: 048
     Dates: start: 20120509, end: 20140915
  4. TYL#4 [Concomitant]
  5. DYSCO [Concomitant]
  6. AMXTRIPTYLINE [Concomitant]
  7. PEGYLATED INTERFERON ALPHA NOS [Concomitant]
     Active Substance: PEGINTERFERON ALFA-2A OR PEGINTERFERON ALFA-2B
  8. PROCBLORPERAZINE [Concomitant]
  9. ZOFRAN [Concomitant]
     Active Substance: ONDANSETRON HYDROCHLORIDE
  10. CLOPIDOGREL [Concomitant]
     Active Substance: CLOPIDOGREL BISULFATE
  11. VITAMIN D [Concomitant]
     Active Substance: CHOLECALCIFEROL
  12. PREVACID [Concomitant]
     Active Substance: LANSOPRAZOLE

REACTIONS (1)
  - Abdominal pain upper [None]

NARRATIVE: CASE EVENT DATE: 20140915
